FAERS Safety Report 12771206 (Version 1)
Quarter: 2016Q3

REPORT INFORMATION
  Report Type: Spontaneous
  Country: US (occurrence: US)
  Receive Date: 20160922
  Receipt Date: 20160922
  Transmission Date: 20161109
  Serious: No
  Sender: FDA-Public Use
  Company Number: US-TARO-2015TAR00799

PATIENT
  Age: 61 Year
  Sex: Female
  Weight: 75.74 kg

DRUGS (1)
  1. LIDOCAINE OINTMENT USP 5% (UNFLAVORED) [Suspect]
     Active Substance: LIDOCAINE
     Dosage: 1 DOSAGE UNITS, ONCE
     Route: 061
     Dates: start: 20150805, end: 20150805

REACTIONS (1)
  - Drug ineffective [Not Recovered/Not Resolved]

NARRATIVE: CASE EVENT DATE: 20150805
